FAERS Safety Report 17188929 (Version 3)
Quarter: 2020Q2

REPORT INFORMATION
  Report Type: Spontaneous
  Country: JP (occurrence: JP)
  Receive Date: 20191222
  Receipt Date: 20200403
  Transmission Date: 20200713
  Serious: Yes (Death, Other)
  Sender: FDA-Public Use
  Company Number: JP-TAKEDA-2019TJP030023

PATIENT
  Age: 77 Year
  Sex: Female
  Weight: 44 kg

DRUGS (13)
  1. FERROUS CITRATE NA [Concomitant]
     Active Substance: SODIUM FERROUS CITRATE
     Indication: ANAEMIA
     Dosage: 100 MILLIGRAM, QD
     Route: 048
     Dates: start: 20191008
  2. ELIQUIS [Concomitant]
     Active Substance: APIXABAN
     Dosage: 2.5 MILLIGRAM, BID
     Route: 048
  3. PREDNISOLONE. [Concomitant]
     Active Substance: PREDNISOLONE
     Indication: COLITIS ULCERATIVE
     Dosage: 25 MILLIGRAM, QD
     Route: 048
     Dates: start: 20191018, end: 20191024
  4. PREDNISOLONE. [Concomitant]
     Active Substance: PREDNISOLONE
     Dosage: 10 MILLIGRAM, QD
     Route: 048
     Dates: start: 20191108, end: 20191119
  5. ENTYVIO [Suspect]
     Active Substance: VEDOLIZUMAB
     Indication: COLITIS ULCERATIVE
     Dosage: 300 MILLIGRAM
     Route: 041
     Dates: start: 20191029, end: 20191112
  6. MIYA-BM [Concomitant]
     Active Substance: CLOSTRIDIUM BUTYRICUM SPORES STRAIN M-55
     Indication: COLITIS ULCERATIVE
     Dosage: 1 GRAM, TID
     Route: 048
     Dates: start: 20190927
  7. RABEPRAZOLE NA [Concomitant]
     Active Substance: RABEPRAZOLE SODIUM
     Indication: PRODUCT USED FOR UNKNOWN INDICATION
     Dosage: 10 MILLIGRAM, QD
     Route: 048
     Dates: start: 20191008
  8. PREDNISOLONE. [Concomitant]
     Active Substance: PREDNISOLONE
     Dosage: 20 MILLIGRAM, QD
     Route: 048
     Dates: start: 20191025, end: 20191031
  9. PREDNISOLONE. [Concomitant]
     Active Substance: PREDNISOLONE
     Dosage: 7.5 MILLIGRAM, QD
     Route: 048
     Dates: start: 20191120
  10. CALFINA [Concomitant]
     Active Substance: ALFACALCIDOL
     Indication: PRODUCT USED FOR UNKNOWN INDICATION
     Dosage: 0.5 MICROGRAM, QD
     Route: 048
     Dates: start: 20191008
  11. LIALDA [Concomitant]
     Active Substance: MESALAMINE
     Indication: COLITIS ULCERATIVE
     Dosage: 4800 MILLIGRAM, QD
     Route: 048
     Dates: start: 20191008
  12. PREDNISOLONE. [Concomitant]
     Active Substance: PREDNISOLONE
     Dosage: 15 MILLIGRAM, QD
     Route: 048
     Dates: start: 20191101, end: 20191107
  13. NICORANDIL [Concomitant]
     Active Substance: NICORANDIL
     Dosage: 5 MILLIGRAM, BID
     Route: 048

REACTIONS (11)
  - Angiopathy [Unknown]
  - Colitis ulcerative [Unknown]
  - Anaemia [Unknown]
  - Oedema peripheral [Unknown]
  - Pulmonary oedema [Unknown]
  - Intestinal ischaemia [Unknown]
  - Cardio-respiratory arrest [Fatal]
  - Ischaemic hepatitis [Unknown]
  - Cytomegalovirus test positive [Unknown]
  - Oliguria [Unknown]
  - Disseminated intravascular coagulation [Unknown]

NARRATIVE: CASE EVENT DATE: 2019
